FAERS Safety Report 6829821-2 (Version None)
Quarter: 2010Q3

REPORT INFORMATION
  Report Type: 
  Country: None (occurrence: None)
  Receive Date: 20100706
  Receipt Date: 20100621
  Transmission Date: 20110219
  Serious: Yes (Hospitalization, Other)
  Sender: FDA-Public Use
  Company Number: 1-23136661

PATIENT
  Age: 75 Year
  Sex: Female

DRUGS (6)
  1. WARFARIN SODIUM [Suspect]
     Indication: THROMBOSIS PROPHYLAXIS
     Dosage: DAILY, ORAL
     Route: 048
     Dates: start: 20090828, end: 20100122
  2. TELMISARTAN [Concomitant]
  3. SPIRONOLACTONE [Concomitant]
  4. HYDROCHLOROTHIAZIDE [Concomitant]
  5. DIGOXIN [Concomitant]
  6. OSTEOFORM (CALCIUM CHELATE) [Concomitant]

REACTIONS (10)
  - AORTIC ARTERIOSCLEROSIS [None]
  - BLOOD LACTATE DEHYDROGENASE INCREASED [None]
  - CEREBRAL ATROPHY [None]
  - DIZZINESS [None]
  - DYSPNOEA [None]
  - HEART RATE INCREASED [None]
  - HYPERTENSIVE HEART DISEASE [None]
  - LACUNAR INFARCTION [None]
  - LEUKOARAIOSIS [None]
  - TRICUSPID VALVE INCOMPETENCE [None]
